FAERS Safety Report 26078530 (Version 3)
Quarter: 2025Q4

REPORT INFORMATION
  Report Type: Spontaneous
  Country: EU (occurrence: EU)
  Receive Date: 20251123
  Receipt Date: 20251212
  Transmission Date: 20260118
  Serious: Yes (Hospitalization, Disabling, Other)
  Sender: AUROBINDO
  Company Number: EU-TEVA-VS-3389573

PATIENT
  Age: 29 Year
  Sex: Male

DRUGS (11)
  1. SILDENAFIL [Suspect]
     Active Substance: SILDENAFIL
     Indication: Sexual dysfunction
     Dosage: 10?20 MG DAILY OR EVERY OTHER DAY FOR APPROXIMATELY 3 WEEKS BEFORE DEVELOPING HEARING LOSS
  2. VITAMIN B6 [Suspect]
     Active Substance: PYRIDOXINE HYDROCHLORIDE
     Indication: Vitamin supplementation
     Dosage: 200 MILLIGRAM (0.33 DAYS)
  3. HYDROCORTISONE [Suspect]
     Active Substance: HYDROCORTISONE
     Indication: Sudden hearing loss
     Dosage: 100 MILLIGRAM, TWO TIMES A DAY
  4. MANNITOL [Suspect]
     Active Substance: MANNITOL
     Indication: Deafness neurosensory
     Dosage: 100 MILLIGRAM, TWO TIMES A DAY
     Route: 065
  5. OMEPRAZOLE [Suspect]
     Active Substance: OMEPRAZOLE
     Indication: Deafness neurosensory
     Dosage: 40 MILLIGRAM, ONCE A DAY
  6. VITAMIN B1 [Suspect]
     Active Substance: THIAMINE HYDROCHLORIDE
     Indication: Vitamin supplementation
     Dosage: 100 MILLIGRAM, TWO TIMES A DAY
  7. VITAMIN B12 [Suspect]
     Active Substance: CYANOCOBALAMIN
     Indication: Vitamin supplementation
     Dosage: 0.2 MILLIGRAM (0.33 DAY)
  8. DAPOXETINE [Concomitant]
     Active Substance: DAPOXETINE
     Indication: Sexual dysfunction
     Dosage: 30 MILLIGRAM
     Route: 065
  9. DAPOXETINE [Concomitant]
     Active Substance: DAPOXETINE
     Dosage: 60 MILLIGRAM
     Route: 065
  10. Dexona [Concomitant]
     Indication: Product used for unknown indication
     Dosage: 4 MILLIGRAM, TWO TIMES A DAY
  11. VITAMIN C [Concomitant]
     Active Substance: ASCORBIC ACID
     Indication: Product used for unknown indication
     Dosage: 1000 MILLIGRAM, ONCE A DAY
     Route: 065

REACTIONS (5)
  - Sudden hearing loss [Not Recovered/Not Resolved]
  - Deafness neurosensory [Not Recovered/Not Resolved]
  - Drug ineffective [Unknown]
  - Headache [Unknown]
  - Tinnitus [Recovered/Resolved]
